FAERS Safety Report 8422743-5 (Version None)
Quarter: 2012Q2

REPORT INFORMATION
  Report Type: 
  Country: None (occurrence: None)
  Receive Date: 20120604
  Receipt Date: 20120519
  Transmission Date: 20120825
  Serious: Yes (Other)
  Sender: FDA-Public Use
  Company Number: LIT-069-12-US

PATIENT
  Age: 66 Year
  Sex: Female

DRUGS (1)
  1. HUMAN NORMAL IMMUNOGLOBULIN FOR IV ADMINISTION [Suspect]
     Indication: GUILLAIN-BARRE SYNDROME

REACTIONS (11)
  - CEREBRAL HAEMORRHAGE [None]
  - CEREBRAL VASOCONSTRICTION [None]
  - BLINDNESS CORTICAL [None]
  - QUADRIPLEGIA [None]
  - DYSPNOEA [None]
  - AUTONOMIC NERVOUS SYSTEM IMBALANCE [None]
  - VASOGENIC CEREBRAL OEDEMA [None]
  - BLOOD PRESSURE INADEQUATELY CONTROLLED [None]
  - POSTERIOR REVERSIBLE ENCEPHALOPATHY SYNDROME [None]
  - HYPERTENSION [None]
  - ISCHAEMIC STROKE [None]
